FAERS Safety Report 21310212 (Version 2)
Quarter: 2023Q2

REPORT INFORMATION
  Report Type: Report from Study
  Country: CN (occurrence: CN)
  Receive Date: 20220909
  Receipt Date: 20230523
  Transmission Date: 20230722
  Serious: Yes (Hospitalization)
  Sender: FDA-Public Use
  Company Number: CN-BAYER-2022A124377

PATIENT
  Age: 71 Year
  Sex: Male
  Weight: 56 kg

DRUGS (12)
  1. RIVAROXABAN [Suspect]
     Active Substance: RIVAROXABAN
     Indication: Peripheral arterial occlusive disease
     Dosage: 2.5 MG, BID
     Route: 048
     Dates: start: 20220310
  2. ASPIRIN [Suspect]
     Active Substance: ASPIRIN
     Indication: Peripheral arterial occlusive disease
     Dosage: 100 MG, QD
     Route: 048
     Dates: start: 2017
  3. CLOPIDOGREL [Concomitant]
     Active Substance: CLOPIDOGREL BISULFATE
     Indication: Antiplatelet therapy
     Dosage: UNK, QD
     Dates: start: 20200708, end: 20220309
  4. GLIMEPIRIDE [Concomitant]
     Active Substance: GLIMEPIRIDE
     Dosage: 4 MG, QD
     Dates: start: 2017
  5. ACARBOSE [Concomitant]
     Active Substance: ACARBOSE
     Dosage: 100 MG, TID
     Dates: start: 2017
  6. PIOGLITAZONE HYDROCHLORIDE [Concomitant]
     Active Substance: PIOGLITAZONE HYDROCHLORIDE
     Dosage: 15 MG, QD
     Dates: start: 2017, end: 20220611
  7. FELODIPINE [Concomitant]
     Active Substance: FELODIPINE
     Dosage: 5 MG, QD
     Dates: start: 2017
  8. PRAVASTATIN SODIUM [Concomitant]
     Active Substance: PRAVASTATIN SODIUM
     Dosage: 1 DF, QD
     Dates: start: 2022
  9. LINAGLIPTIN [Concomitant]
     Active Substance: LINAGLIPTIN
     Dosage: 5 MG, QD
     Dates: start: 20220612
  10. SHU XUE NING [GINKGO BILOBA EXTRACT] [Concomitant]
     Dosage: UNK UNK, QD
     Dates: start: 20220723, end: 20220801
  11. MIGLITOL [Concomitant]
     Active Substance: MIGLITOL
     Dosage: 25 MG, TID
     Dates: start: 2017
  12. EPALRESTAT [Concomitant]
     Active Substance: EPALRESTAT
     Dosage: 50 MG, TID
     Dates: start: 2012

REACTIONS (1)
  - Cerebral infarction [Recovered/Resolved]

NARRATIVE: CASE EVENT DATE: 20220723
